FAERS Safety Report 9317652 (Version 1)
Quarter: 2013Q2

REPORT INFORMATION
  Report Type: Spontaneous
  Country: US (occurrence: US)
  Receive Date: 20130530
  Receipt Date: 20130530
  Transmission Date: 20140414
  Serious: No
  Sender: FDA-Public Use
  Company Number: US-GLAXOSMITHKLINE-A0975312A

PATIENT
  Age: 63 Year
  Sex: Female

DRUGS (4)
  1. VENTOLIN [Suspect]
     Indication: CHRONIC OBSTRUCTIVE PULMONARY DISEASE
     Dosage: 1SPR VARIABLE DOSE
     Route: 055
     Dates: start: 20120419
  2. FUROSEMIDE [Concomitant]
  3. METOPROLOL [Concomitant]
  4. ADVAIR [Concomitant]

REACTIONS (4)
  - Palpitations [Recovered/Resolved]
  - Dizziness [Unknown]
  - Dysgeusia [Unknown]
  - Product quality issue [Unknown]
